FAERS Safety Report 5175430-3 (Version None)
Quarter: 2006Q4

REPORT INFORMATION
  Report Type: 
  Country: None (occurrence: None)
  Receive Date: 20061215
  Receipt Date: 20061207
  Transmission Date: 20070319
  Serious: Yes (Death)
  Sender: FDA-Public Use
  Company Number: CA-BRISTOL-MYERS SQUIBB COMPANY-13605274

PATIENT
  Age: 70 Year
  Sex: Female

DRUGS (23)
  1. ORENCIA [Suspect]
     Indication: RHEUMATOID ARTHRITIS
     Route: 042
     Dates: start: 20061205, end: 20061205
  2. PREDNISONE TAB [Concomitant]
  3. LEFLUNOMIDE [Concomitant]
  4. FERROUS GLUCONATE [Concomitant]
  5. ACTONEL [Concomitant]
  6. SPIRONOLACTONE [Concomitant]
  7. FUROSEMIDE [Concomitant]
  8. CITALOPRAM HYDROBROMIDE [Concomitant]
  9. METHOTREXATE [Concomitant]
  10. FOLIC ACID [Concomitant]
  11. CALCIUM CARBONATE [Concomitant]
  12. COZAAR [Concomitant]
  13. PANTOLOC [Concomitant]
  14. VITAMIN D [Concomitant]
  15. PRAVASTATIN SODIUM [Concomitant]
  16. COUMADIN [Concomitant]
  17. COUMADIN [Concomitant]
  18. AMITRIPTYLINE HCL [Concomitant]
  19. GABAPENTIN [Concomitant]
  20. CESAMET [Concomitant]
  21. ARAVA [Concomitant]
  22. MULTI-VITAMIN [Concomitant]
  23. POTASSIUM CHLORIDE [Concomitant]

REACTIONS (1)
  - DEATH [None]
